FAERS Safety Report 9416293 (Version 2)
Quarter: 2013Q3

REPORT INFORMATION
  Report Type: Spontaneous
  Country: FR (occurrence: FR)
  Receive Date: 20130724
  Receipt Date: 20130807
  Transmission Date: 20140515
  Serious: Yes (Other)
  Sender: FDA-Public Use
  Company Number: FR-BRISTOL-MYERS SQUIBB COMPANY-18929851

PATIENT
  Age: 85 Year
  Sex: Male
  Weight: 65 kg

DRUGS (5)
  1. KOMBOGLYZE [Suspect]
     Indication: DIABETES MELLITUS
     Dates: start: 20130413, end: 20130416
  2. XATRAL LP [Concomitant]
     Indication: PROSTATIC DISORDER
     Route: 048
     Dates: start: 20100525
  3. CRESTOR [Concomitant]
     Indication: BLOOD CHOLESTEROL INCREASED
     Route: 048
     Dates: start: 20100526
  4. KARDEGIC [Concomitant]
     Indication: CARDIOVASCULAR DISORDER
     Route: 048
     Dates: start: 20100526
  5. TENORMINE [Concomitant]
     Indication: CARDIOVASCULAR DISORDER
     Route: 048
     Dates: start: 20100526

REACTIONS (4)
  - Blood pressure increased [Recovered/Resolved]
  - Myoclonus [Recovered/Resolved]
  - Headache [Recovered/Resolved]
  - Tremor [Recovered/Resolved]
